FAERS Safety Report 8548625-6 (Version None)
Quarter: 2012Q3

REPORT INFORMATION
  Report Type: 
  Country: None (occurrence: None)
  Receive Date: 20120730
  Receipt Date: 20120725
  Transmission Date: 20120928
  Serious: Yes (Hospitalization, Other)
  Sender: FDA-Public Use
  Company Number: US-BAYER-2012-055893

PATIENT
  Age: 23 Year
  Sex: Male

DRUGS (6)
  1. KOGENATE FS [Suspect]
     Dosage: BOLUS DOSE
     Dates: start: 20120201, end: 20120201
  2. KOGENATE FS [Suspect]
     Dosage: 5 IU/ KG/ HR CONTINUOUS INFUSION
     Dates: start: 20120401, end: 20120401
  3. KOGENATE FS [Suspect]
     Dosage: CONTINUOUS INFUSION
     Dates: start: 20120501, end: 20120501
  4. KOGENATE FS [Suspect]
     Dosage: 4 IU/KG/HR CONTINUOUS INFUSION
     Dates: start: 20120301, end: 20120301
  5. ADVATE [FACTOR VIII (ANTIHAEMOPHILIC FACTOR)] [Concomitant]
     Indication: PROPHYLAXIS
  6. KOGENATE FS [Suspect]
     Indication: FACTOR VIII DEFICIENCY
     Dosage: PROPHYLAXIS
     Dates: start: 20110701, end: 20120201

REACTIONS (2)
  - ANTI FACTOR VIII ANTIBODY POSITIVE [None]
  - HAEMORRHAGE [None]
